FAERS Safety Report 9049421 (Version 1)
Quarter: 2013Q1

REPORT INFORMATION
  Report Type: Report from Study
  Country: US (occurrence: US)
  Receive Date: 20130205
  Receipt Date: 20130205
  Transmission Date: 20140127
  Serious: Yes (Hospitalization, Other)
  Sender: FDA-Public Use
  Company Number: US-JNJFOC-20130116840

PATIENT
  Sex: Male
  Weight: 108.86 kg

DRUGS (6)
  1. REMICADE [Suspect]
     Indication: ANKYLOSING SPONDYLITIS
     Route: 042
     Dates: start: 201107
  2. METHADONE [Concomitant]
     Indication: PAIN
     Route: 048
     Dates: start: 2008
  3. HYDROCODONE [Concomitant]
     Indication: PAIN
     Route: 048
     Dates: end: 2012
  4. LISINOPRIL [Concomitant]
     Indication: BLOOD PRESSURE
     Route: 048
     Dates: start: 2010
  5. METFORMIN [Concomitant]
     Indication: DIABETES MELLITUS
     Dates: start: 2010
  6. GLIPIZIDE [Concomitant]
     Indication: DIABETES MELLITUS
     Route: 048

REACTIONS (9)
  - Platelet count decreased [Recovered/Resolved]
  - Dyspnoea [Recovered/Resolved]
  - Hypotension [Recovered/Resolved]
  - Heart rate increased [Recovered/Resolved]
  - Breakthrough pain [Unknown]
  - Diabetes mellitus inadequate control [Unknown]
  - Infusion related reaction [Unknown]
  - Vomiting [Recovered/Resolved]
  - Nausea [Recovered/Resolved]
